FAERS Safety Report 4985017-0 (Version None)
Quarter: 2006Q2

REPORT INFORMATION
  Report Type: 
  Country: None (occurrence: None)
  Receive Date: 20060426
  Receipt Date: 20060426
  Transmission Date: 20061013
  Serious: Yes (Death, Hospitalization)
  Sender: FDA-Public Use
  Company Number: None

PATIENT
  Age: 27 Year
  Sex: Male
  Weight: 110 kg

DRUGS (5)
  1. METFORMIN [Suspect]
     Indication: DIABETES MELLITUS NON-INSULIN-DEPENDENT
     Dosage: 500MG   TWO TIMES DAILY  PO
     Route: 048
  2. INSULIN GLARGINE [Concomitant]
  3. GEMFIBROZIL [Concomitant]
  4. SIMVASTATIN [Concomitant]
  5. LISINOPRIL [Concomitant]

REACTIONS (9)
  - ACIDOSIS [None]
  - BLOOD LACTIC ACID INCREASED [None]
  - DISEASE RECURRENCE [None]
  - HYPOTENSION [None]
  - HYPOVOLAEMIA [None]
  - PANCREATITIS [None]
  - PULMONARY EMBOLISM [None]
  - RENAL FAILURE ACUTE [None]
  - RESPIRATORY ARREST [None]
